FAERS Safety Report 9726051 (Version 4)
Quarter: 2013Q4

REPORT INFORMATION
  Report Type: Spontaneous
  Country: JP (occurrence: JP)
  Receive Date: 20131203
  Receipt Date: 20131220
  Transmission Date: 20140711
  Serious: Yes (Death, Life-Threatening)
  Sender: FDA-Public Use
  Company Number: JP-B.I. PHARMACEUTICALS,INC./RIDGEFIELD-2013-BI-39738NB

PATIENT
  Age: 86 Year
  Sex: Male
  Weight: 50 kg

DRUGS (10)
  1. PRAZAXA [Suspect]
     Dosage: 220 MG
     Route: 048
  2. PLAVIX [Suspect]
     Dosage: 50 MG
     Route: 065
  3. BAYASPIRIN [Suspect]
     Dosage: 100 MG
     Route: 065
  4. HEPARIN [Suspect]
     Route: 042
     Dates: start: 20131127
  5. PLAVIX / CLOPIDOGREL SULFATE [Concomitant]
     Route: 065
  6. ASPIRIN [Concomitant]
     Route: 065
  7. TAKEPRON / LANSOPRAZOLE [Concomitant]
     Dosage: 15 MG
     Route: 048
     Dates: start: 20131127
  8. NU-LOTAN / LOSARTAN POTASSIUM [Concomitant]
     Dosage: 25 MG
     Route: 048
  9. LOCHOL / FLUVASTATIN SODIUM [Concomitant]
     Dosage: 20 MG
     Route: 048
  10. FERROMIA / SODIUM FERROUS CITRATE [Concomitant]
     Dosage: 50 MG
     Route: 048

REACTIONS (4)
  - Cerebral haemorrhage [Fatal]
  - Activated partial thromboplastin time prolonged [Fatal]
  - Coronary artery embolism [Fatal]
  - Drug ineffective [Unknown]
